FAERS Safety Report 12194684 (Version 1)
Quarter: 2016Q1

REPORT INFORMATION
  Report Type: Spontaneous
  Country: US (occurrence: None)
  Receive Date: 20160318
  Receipt Date: 20160318
  Transmission Date: 20160526
  Serious: Yes (Hospitalization)
  Sender: FDA-Public Use
  Company Number: None

PATIENT
  Age: 72 Year
  Sex: Male
  Weight: 84.5 kg

DRUGS (12)
  1. LEVAQUIN [Concomitant]
     Active Substance: LEVOFLOXACIN
  2. CISPLATIN. [Suspect]
     Active Substance: CISPLATIN
     Dates: end: 20160208
  3. CITALOPRAM [Concomitant]
     Active Substance: CITALOPRAM HYDROBROMIDE
  4. METOPROLOL. [Concomitant]
     Active Substance: METOPROLOL
  5. VENTOLIN HFA [Concomitant]
     Active Substance: ALBUTEROL SULFATE
  6. ETOPOSIDE (VP-16) [Suspect]
     Active Substance: ETOPOSIDE
     Dates: end: 20160302
  7. ATENOLOL. [Concomitant]
     Active Substance: ATENOLOL
  8. BENZONATATE. [Concomitant]
     Active Substance: BENZONATATE
  9. HYDROXYZINE [Concomitant]
     Active Substance: HYDROXYZINE\HYDROXYZINE HYDROCHLORIDE
  10. SYNTHROID [Concomitant]
     Active Substance: LEVOTHYROXINE SODIUM
  11. ASPIRIN. [Concomitant]
     Active Substance: ASPIRIN
  12. RESTORIL [Concomitant]
     Active Substance: TEMAZEPAM

REACTIONS (1)
  - Acute respiratory distress syndrome [None]

NARRATIVE: CASE EVENT DATE: 20160315
